FAERS Safety Report 17116296 (Version 1)
Quarter: 2019Q4

REPORT INFORMATION
  Report Type: Spontaneous
  Country: JP (occurrence: JP)
  Receive Date: 20191205
  Receipt Date: 20191205
  Transmission Date: 20200122
  Serious: Yes (Other)
  Sender: FDA-Public Use
  Company Number: JP-ELI_LILLY_AND_COMPANY-JP201912001477

PATIENT
  Age: 65 Year
  Sex: Male

DRUGS (2)
  1. DULOXETINE HYDROCHLORIDE. [Suspect]
     Active Substance: DULOXETINE HYDROCHLORIDE
     Indication: BACK PAIN
     Dosage: 20 MG, DAILY
  2. TARLIGE [Suspect]
     Active Substance: MIROGABALIN BESYLATE
     Indication: LUMBAR SPINAL STENOSIS
     Dosage: UNK

REACTIONS (1)
  - Loss of consciousness [Recovered/Resolved]
